FAERS Safety Report 8514391-3 (Version None)
Quarter: 2012Q3

REPORT INFORMATION
  Report Type: 
  Country: None (occurrence: None)
  Receive Date: 20120717
  Receipt Date: 20120419
  Transmission Date: 20120928
  Serious: Yes (Life-Threatening)
  Sender: FDA-Public Use
  Company Number: FR-ASTRAZENECA-2012SE47064

PATIENT

DRUGS (5)
  1. PROPOFOL [Suspect]
     Indication: GENERAL ANAESTHESIA
     Route: 042
  2. LIDOCAINE [Suspect]
     Indication: LOCAL ANAESTHESIA
     Route: 053
  3. ALFENTANIL [Suspect]
     Indication: GENERAL ANAESTHESIA
     Route: 042
  4. PROPOFOL [Suspect]
     Route: 042
  5. ALFENTANIL [Suspect]
     Route: 042

REACTIONS (1)
  - UPPER AIRWAY OBSTRUCTION [None]
